FAERS Safety Report 8403838 (Version 3)
Quarter: 2012Q4

REPORT INFORMATION
  Report Type: 
  Country: US (occurrence: US)
  Receive Date: 20120213
  Receipt Date: 20120928
  Transmission Date: 20130627
  Serious: Yes (Other)
  Sender: FDA-Public Use
  Company Number: US-ASTRAZENECA-2011SE36715

PATIENT
  Age: 45 Year
  Sex: Female

DRUGS (66)
  1. NEXIUM [Suspect]
     Route: 048
  2. PULMICORT RESPULES [Suspect]
     Dosage: 0.5 MG/ 2 ML TWO TIMES DAILY
     Route: 055
  3. LISINOPRIL [Suspect]
     Route: 048
  4. PRILOSEC [Suspect]
     Route: 048
  5. COUMADIN [Concomitant]
     Dosage: 7.5 MG ON MONDAY AND FRIDAY, 5 MG ON OTHER DAYS
     Route: 048
  6. CALAN SR [Concomitant]
  7. ECOTRIN ASPIRIN [Concomitant]
     Route: 048
  8. FLEXERIL [Concomitant]
     Indication: MUSCLE SPASMS
     Dosage: 10 MG TWO TIMES A DAY AS NEEDED
     Route: 048
  9. THYMOCYTE PLUS [Concomitant]
  10. IMDUR [Concomitant]
     Route: 048
  11. IMDUR [Concomitant]
     Route: 048
  12. K-DUR/KLORCON [Concomitant]
     Route: 048
  13. K-DUR/KLORCON [Concomitant]
     Route: 048
  14. NOVOLOG FLEXPEN [Concomitant]
     Dosage: 100 UNIT/ML
     Route: 058
  15. HYDROCODON-ACETAMINOPHEN [Concomitant]
     Indication: PAIN
     Dosage: 1 TABLET TWO TIMES DAILY AS NEEDED
     Route: 048
  16. K-DUR, KLORCON M20 [Concomitant]
     Route: 048
  17. ERGOCALCIFEROL [Concomitant]
     Dosage: 50000 UNIT 1 CAPSULE ONCE A WEEK
     Route: 048
  18. ASCORBIC ACID [Concomitant]
     Route: 048
  19. ASPIRIN [Concomitant]
     Route: 048
  20. BACTROBAN [Concomitant]
     Route: 045
  21. MS CONTIN [Concomitant]
     Route: 048
  22. XANAX [Concomitant]
     Dosage: 1MG, THREE TIMES A DAY AS NEEDED
     Route: 048
  23. LEVAQUIN [Concomitant]
     Route: 048
  24. COLACE [Concomitant]
     Route: 048
  25. LASIX [Concomitant]
     Route: 048
  26. LASIX [Concomitant]
     Route: 048
  27. GLUCOTROL [Concomitant]
     Route: 048
  28. SINGULAIR [Concomitant]
     Route: 048
  29. MUCINEX [Concomitant]
     Dosage: EVERY 12 HOURS AS NEEDED
     Route: 048
  30. DUONEB [Concomitant]
     Indication: DYSPNOEA
     Dosage: 0.5 MG + 3 MG EVERY 4 HOURS AS NEEDED
     Route: 055
  31. NITRO-DUR [Concomitant]
     Dosage: AS REQUIRED
     Route: 062
  32. PROVENTIL/VENTOLIN [Concomitant]
     Dosage: 90 MCG/ACTUATION 2 PUFFS FOUR TIMES DAILY AS NEEDED
     Route: 055
  33. THEODUR [Concomitant]
     Route: 048
  34. ADVAIR [Concomitant]
     Dosage: 100-50 MCG/DOSE 1 PUFF EVERY 12 HOURS
     Route: 055
  35. SYNTHROID [Concomitant]
     Route: 048
  36. PAXIL [Concomitant]
     Route: 048
  37. NIACOR [Concomitant]
     Route: 048
  38. MYCOSTATIN [Concomitant]
     Dosage: 5 ML AFTER EACH MEAL AND AT BEDTIME
     Route: 048
  39. MEVACOR [Concomitant]
     Route: 048
  40. SENNA PLUS [Concomitant]
     Dosage: 8.6-50 MG DAILY AS NEEDED
     Route: 048
  41. VERELAN [Concomitant]
     Route: 048
  42. ZYRTEC [Concomitant]
     Route: 048
  43. LOTRISONE [Concomitant]
     Dosage: 1-0.05% TWO TIMES DAILY
     Route: 061
  44. LOPRESSOR [Concomitant]
     Route: 048
  45. SPIRIVA [Concomitant]
     Route: 055
  46. AMBIEN [Concomitant]
     Indication: SLEEP DISORDER
     Dosage: 2 TABLETS AT BEDTIME AS NEEDED
     Route: 048
  47. PROTONIX [Concomitant]
     Route: 048
  48. ZOFRAN [Concomitant]
     Indication: NAUSEA
     Dosage: 8 MG, 1 TABLET EVERY 8 HOURS AS NEEDED
     Route: 048
  49. CALMOSEPTINE [Concomitant]
     Dosage: EXTERNALLY ROUTE
  50. NASONEX [Concomitant]
     Dosage: 50 MCG EVERY DAY
     Route: 045
  51. ROLAIDS [Concomitant]
  52. DIFLUCAN [Concomitant]
     Route: 048
  53. LORCET [Concomitant]
     Indication: PAIN
     Route: 048
  54. PHENERGAN [Concomitant]
     Indication: NAUSEA
     Route: 048
  55. BENADRYL [Concomitant]
     Indication: PRURITUS
     Dosage: 25 MG TWO TABS EACH NIGHT AT BEDTIME AS NEEDED
     Route: 048
  56. VITAMIN C [Concomitant]
     Route: 048
  57. MIRALAX [Concomitant]
     Route: 048
  58. EPIPEN [Concomitant]
     Indication: HYPERSENSITIVITY
     Dosage: 0.3MG/0.3 ML AS NEEDED
     Route: 030
  59. FOSAMAX [Concomitant]
     Route: 048
  60. KENALOG [Concomitant]
     Dosage: TWO TIMES DAILY AS NEEDED
     Route: 061
  61. GUAIFENESIN [Concomitant]
     Route: 048
  62. BENZOYL PEROXIDE [Concomitant]
     Dosage: TWICE DAILY
     Route: 061
  63. VITAMIN D [Concomitant]
     Route: 048
  64. PROVENTIL [Concomitant]
     Dosage: 2 PUFFS FOUR TIMES DAILY AS NEEDED
     Route: 055
  65. VENTOLIN [Concomitant]
     Dosage: 2 PUFFS FOUR TIMES DAILY AS NEEDED
     Route: 055
  66. CALMOSEPTINE EX [Concomitant]

REACTIONS (27)
  - Deep vein thrombosis [Unknown]
  - Pulmonary embolism [Unknown]
  - Neoplasm [Unknown]
  - Hiatus hernia [Unknown]
  - Dysphonia [Unknown]
  - Hyperchlorhydria [Unknown]
  - Coronary artery disease [Unknown]
  - Essential hypertension [Unknown]
  - Type 2 diabetes mellitus [Unknown]
  - Essential hypertension [Unknown]
  - Hypothyroidism [Unknown]
  - Bipolar disorder [Unknown]
  - Chronic obstructive pulmonary disease [Unknown]
  - Anaemia [Unknown]
  - Candidiasis [Unknown]
  - Intervertebral disc degeneration [Unknown]
  - Back pain [Unknown]
  - Swelling [Unknown]
  - Nausea [Unknown]
  - Malaise [Unknown]
  - Vomiting [Unknown]
  - Insomnia [Unknown]
  - Liver function test abnormal [Unknown]
  - Oedema peripheral [Unknown]
  - Drug hypersensitivity [Unknown]
  - Aphagia [Unknown]
  - Drug dose omission [Unknown]
